FAERS Safety Report 6079672-4 (Version None)
Quarter: 2009Q1

REPORT INFORMATION
  Report Type: 
  Country: None (occurrence: None)
  Receive Date: 20090211
  Receipt Date: 20090127
  Transmission Date: 20090719
  Serious: Yes (Other)
  Sender: FDA-Public Use
  Company Number: 2009S1001683

PATIENT
  Age: 59 Year
  Sex: Male

DRUGS (11)
  1. LAMOTRIGINE [Suspect]
     Indication: EPILEPSY
     Dosage: 25 MG;DAILY, 100 MG;DAILY
     Dates: end: 20010801
  2. LAMOTRIGINE [Suspect]
     Indication: EPILEPSY
     Dosage: 25 MG;DAILY, 100 MG;DAILY
     Dates: start: 19991001
  3. FELODIPINE [Concomitant]
  4. DOXAZOSIN MESYLATE [Concomitant]
  5. ASPIRIN [Concomitant]
  6. CARBAMAZEPINE [Concomitant]
  7. CARBAMAZEPINE [Concomitant]
  8. CARBAMAZEPINE [Concomitant]
  9. VALPROATE SODIUM [Concomitant]
  10. PHENYTOIN [Concomitant]
  11. ETHOSUXIMIDE [Concomitant]

REACTIONS (5)
  - DRUG EFFECT DECREASED [None]
  - HYPOGAMMAGLOBULINAEMIA [None]
  - LETHARGY [None]
  - LOWER RESPIRATORY TRACT INFECTION [None]
  - UPPER RESPIRATORY TRACT INFECTION [None]
